FAERS Safety Report 12735263 (Version 2)
Quarter: 2018Q3

REPORT INFORMATION
  Report Type: Spontaneous
  Country: US (occurrence: US)
  Receive Date: 20160913
  Receipt Date: 20180926
  Transmission Date: 20181010
  Serious: Yes (Other)
  Sender: FDA-Public Use
  Company Number: PHEH2016US022507

PATIENT
  Age: 48 Year
  Sex: Male

DRUGS (1)
  1. ENTRESTO [Suspect]
     Active Substance: SACUBITRIL\VALSARTAN
     Indication: LEFT VENTRICULAR FAILURE
     Dosage: 50 MG, BID
     Route: 048
     Dates: end: 20160831

REACTIONS (3)
  - Peripheral swelling [Unknown]
  - Angioedema [Recovered/Resolved]
  - Pharyngeal oedema [Unknown]

NARRATIVE: CASE EVENT DATE: 20160830
